FAERS Safety Report 6659558-4 (Version None)
Quarter: 2010Q1

REPORT INFORMATION
  Report Type: 
  Country: None (occurrence: None)
  Receive Date: 20100330
  Receipt Date: 20100322
  Transmission Date: 20100710
  Serious: Yes (Death)
  Sender: FDA-Public Use
  Company Number: US-NICOBRDEVP-2010-03583

PATIENT
  Age: 51 Year
  Sex: Female

DRUGS (11)
  1. CLONAZEPAM [Suspect]
     Indication: DRUG USE FOR UNKNOWN INDICATION
  2. DOXEPIN (WATSON LABORATORIES) [Suspect]
     Indication: DRUG USE FOR UNKNOWN INDICATION
  3. CLONIDINE [Suspect]
     Indication: DRUG USE FOR UNKNOWN INDICATION
  4. DIPHENHYDRAMINE HCL [Suspect]
     Indication: DRUG USE FOR UNKNOWN INDICATION
  5. SERTRALINE HYDROCHLORIDE [Suspect]
     Indication: DRUG USE FOR UNKNOWN INDICATION
  6. OXYTROL [Suspect]
     Indication: DRUG USE FOR UNKNOWN INDICATION
  7. ETHANOL [Suspect]
     Indication: DRUG USE FOR UNKNOWN INDICATION
  8. UNKNOWN DRUG [Suspect]
     Indication: DRUG USE FOR UNKNOWN INDICATION
  9. SILDENAFIL CITRATE [Suspect]
     Indication: DRUG USE FOR UNKNOWN INDICATION
  10. DULOXETINE HYDROCHLORIDE [Suspect]
     Indication: DRUG USE FOR UNKNOWN INDICATION
  11. ESCITALOPRAM [Suspect]
     Indication: DRUG USE FOR UNKNOWN INDICATION

REACTIONS (1)
  - DEATH [None]
